FAERS Safety Report 5211919-6 (Version None)
Quarter: 2007Q1

REPORT INFORMATION
  Report Type: 
  Country: None (occurrence: None)
  Receive Date: 20070116
  Receipt Date: 20070116
  Transmission Date: 20070707
  Serious: Yes (Other)
  Sender: FDA-Public Use
  Company Number: None

PATIENT
  Age: 18 Year
  Sex: Male
  Weight: 72.5755 kg

DRUGS (2)
  1. CORICIDIN [Suspect]
     Indication: DRUG USE FOR UNKNOWN INDICATION
     Dosage: PO
     Route: 048
  2. NARCOTIC AGONIST ANALGESIC [Concomitant]

REACTIONS (11)
  - ABNORMAL BEHAVIOUR [None]
  - ANGER [None]
  - EDUCATIONAL PROBLEM [None]
  - IMPRISONMENT [None]
  - INTENTIONAL DRUG MISUSE [None]
  - LEGAL PROBLEM [None]
  - MEMORY IMPAIRMENT [None]
  - OVERDOSE [None]
  - PSYCHOMOTOR HYPERACTIVITY [None]
  - SEXUAL ABUSE [None]
  - THEFT [None]
